FAERS Safety Report 4459066-5 (Version None)
Quarter: 2004Q3

REPORT INFORMATION
  Report Type: 
  Country: None (occurrence: None)
  Receive Date: 20040922
  Receipt Date: 20040922
  Transmission Date: 20050211
  Serious: Yes (Hospitalization)
  Sender: FDA-Public Use
  Company Number: None

PATIENT
  Age: 68 Year
  Sex: Female
  Weight: 125.2 kg

DRUGS (1)
  1. GEMCITABINE [Suspect]
     Indication: PANCREATIC CARCINOMA
     Dosage: 1125 MG/M2

REACTIONS (4)
  - COUGH [None]
  - DYSPNOEA EXERTIONAL [None]
  - SINUS PAIN [None]
  - VIRAL INFECTION [None]
